FAERS Safety Report 15857388 (Version 1)
Quarter: 2019Q1

REPORT INFORMATION
  Report Type: Spontaneous
  Country: US (occurrence: US)
  Receive Date: 20190122
  Receipt Date: 20190122
  Transmission Date: 20190417
  Serious: Yes (Other)
  Sender: FDA-Public Use
  Company Number: None

PATIENT
  Age: 66 Year
  Sex: Male
  Weight: 112.95 kg

DRUGS (17)
  1. LISINOPRIL. [Concomitant]
     Active Substance: LISINOPRIL
  2. HEPARIN [Concomitant]
     Active Substance: HEPARIN SODIUM
  3. CAPECITABINE. [Suspect]
     Active Substance: CAPECITABINE
     Indication: PANCREATIC CARCINOMA
     Route: 048
     Dates: start: 20181019
  4. XARELTO [Concomitant]
     Active Substance: RIVAROXABAN
  5. DEXAMETHASONE. [Concomitant]
     Active Substance: DEXAMETHASONE
  6. LANTUS [Concomitant]
     Active Substance: INSULIN GLARGINE
  7. OXALIPLATIN. [Concomitant]
     Active Substance: OXALIPLATIN
  8. HUMALOG [Concomitant]
     Active Substance: INSULIN LISPRO
  9. FLUOROURACIL. [Concomitant]
     Active Substance: FLUOROURACIL
  10. ONDANSETRON [Concomitant]
     Active Substance: ONDANSETRON
  11. EMLA [Concomitant]
     Active Substance: LIDOCAINE\PRILOCAINE
  12. LIPITOR [Concomitant]
     Active Substance: ATORVASTATIN CALCIUM
  13. ATROPINE. [Concomitant]
     Active Substance: ATROPINE
  14. LEUCOVORIN. [Concomitant]
     Active Substance: LEUCOVORIN
  15. CAPECITABINE. [Suspect]
     Active Substance: CAPECITABINE
     Indication: PANCREATIC CARCINOMA
     Route: 048
     Dates: start: 20181019
  16. GRANISETRON [Concomitant]
     Active Substance: GRANISETRON
  17. FLONASE [Concomitant]
     Active Substance: FLUTICASONE PROPIONATE

REACTIONS (1)
  - Disease progression [None]
